FAERS Safety Report 5288796-0 (Version None)
Quarter: 2007Q2

REPORT INFORMATION
  Report Type: 
  Country: None (occurrence: None)
  Receive Date: 20070405
  Receipt Date: 20070326
  Transmission Date: 20071010
  Serious: No
  Sender: FDA-Public Use
  Company Number: US-ELI_LILLY_AND_COMPANY-US200703005457

PATIENT
  Age: 38 Year
  Sex: Male

DRUGS (2)
  1. CYMBALTA [Suspect]
     Dosage: 60 MG, DAILY (1/D)
     Dates: start: 20070201
  2. TEGRETOL [Concomitant]

REACTIONS (2)
  - DRUG INTERACTION [None]
  - HEPATIC ENZYME INCREASED [None]
